FAERS Safety Report 16458807 (Version 1)
Quarter: 2019Q2

REPORT INFORMATION
  Report Type: Spontaneous
  Country: US (occurrence: US)
  Receive Date: 20190620
  Receipt Date: 20190620
  Transmission Date: 20190711
  Serious: No
  Sender: FDA-Public Use
  Company Number: US-THERAPEUTICSMD-2019TMD00650

PATIENT
  Age: 66 Year
  Sex: Female
  Weight: 60.14 kg

DRUGS (1)
  1. IMVEXXY [Suspect]
     Active Substance: ESTRADIOL
     Indication: ATROPHIC VULVOVAGINITIS
     Dosage: 10 ?G, 1X/DAY JUST PRIOR TO BED
     Route: 067
     Dates: start: 20181126, end: 201812

REACTIONS (7)
  - Nausea [Recovered/Resolved]
  - Muscle spasms [Recovered/Resolved]
  - Feeling abnormal [Recovered/Resolved]
  - Vulvovaginal pain [Recovered/Resolved]
  - Pelvic pain [Recovered/Resolved]
  - Abdominal discomfort [Recovered/Resolved]
  - Headache [Recovered/Resolved]

NARRATIVE: CASE EVENT DATE: 20181127
